FAERS Safety Report 9472515 (Version 1)
Quarter: 2013Q3

REPORT INFORMATION
  Report Type: Report from Study
  Country: CA (occurrence: CA)
  Receive Date: 20130823
  Receipt Date: 20130823
  Transmission Date: 20140515
  Serious: Yes (Other)
  Sender: FDA-Public Use
  Company Number: PHHY2013CA090290

PATIENT
  Age: 20 Year
  Sex: Female

DRUGS (1)
  1. GILENYA [Suspect]
     Indication: RELAPSING-REMITTING MULTIPLE SCLEROSIS
     Dosage: 0.5 MG, QD
     Route: 048
     Dates: start: 20111004, end: 20120906

REACTIONS (5)
  - Colour blindness [Recovering/Resolving]
  - Vision blurred [Recovering/Resolving]
  - Chest pain [Unknown]
  - Back pain [Unknown]
  - Multiple sclerosis relapse [Unknown]
